FAERS Safety Report 14674108 (Version 1)
Quarter: 2018Q1

REPORT INFORMATION
  Report Type: Spontaneous
  Country: US (occurrence: US)
  Receive Date: 20180323
  Receipt Date: 20180323
  Transmission Date: 20180509
  Serious: No
  Sender: FDA-Public Use
  Company Number: US-PERRIGO-17US002984

PATIENT
  Age: 76 Year
  Sex: Female
  Weight: 77.98 kg

DRUGS (1)
  1. ACETAMINOPHEN. [Suspect]
     Active Substance: ACETAMINOPHEN
     Indication: ARTHRALGIA
     Dosage: 1300 MG TWICE, 650 MG ONCE
     Route: 048
     Dates: start: 20170325, end: 20170325

REACTIONS (3)
  - Joint swelling [Recovering/Resolving]
  - Underdose [Recovered/Resolved]
  - Peripheral swelling [Recovered/Resolved]

NARRATIVE: CASE EVENT DATE: 20170325
